FAERS Safety Report 21647557 (Version 1)
Quarter: 2022Q4

REPORT INFORMATION
  Report Type: Spontaneous
  Country: US (occurrence: None)
  Receive Date: 20221128
  Receipt Date: 20221128
  Transmission Date: 20230113
  Serious: No
  Sender: FDA-Public Use
  Company Number: 2022A368557

PATIENT
  Sex: Male

DRUGS (1)
  1. CRESTOR [Suspect]
     Active Substance: ROSUVASTATIN CALCIUM
     Dosage: 10.0MG UNKNOWN
     Route: 048
     Dates: start: 2008

REACTIONS (8)
  - Exercise tolerance decreased [Unknown]
  - Arthritis [Unknown]
  - Myopathy [Unknown]
  - Muscular weakness [Unknown]
  - Pain in extremity [Unknown]
  - Muscle spasms [Unknown]
  - Muscle disorder [Unknown]
  - Incorrect dose administered [Unknown]
